FAERS Safety Report 4772896-5 (Version None)
Quarter: 2005Q3

REPORT INFORMATION
  Report Type: 
  Country: None (occurrence: None)
  Receive Date: 20050916
  Receipt Date: 20050906
  Transmission Date: 20060218
  Serious: Yes (Other)
  Sender: FDA-Public Use
  Company Number: 2005S1000265

PATIENT
  Sex: Female

DRUGS (2)
  1. ACITRETIN (ACITRETIN)  (25 MG) [Suspect]
     Dosage: PO
     Route: 048
     Dates: start: 20040601, end: 20050601
  2. ORAL CONTRACEPTIVE NOS [Concomitant]

REACTIONS (2)
  - DRUG EXPOSURE DURING PREGNANCY [None]
  - PREGNANCY ON ORAL CONTRACEPTIVE [None]
